FAERS Safety Report 17195844 (Version 4)
Quarter: 2020Q1

REPORT INFORMATION
  Report Type: Spontaneous
  Country: RS (occurrence: RS)
  Receive Date: 20191224
  Receipt Date: 20200227
  Transmission Date: 20200409
  Serious: Yes (Other)
  Sender: FDA-Public Use
  Company Number: RS-HRARD-201901012

PATIENT
  Sex: Female
  Weight: 63 kg

DRUGS (24)
  1. LYSODREN [Suspect]
     Active Substance: MITOTANE
     Indication: ADJUVANT THERAPY
     Dosage: 03 TABLETS PER DAY, GRADUALLY INCREASED
     Dates: start: 201909, end: 2019
  2. LYSODREN [Suspect]
     Active Substance: MITOTANE
     Indication: ADJUVANT THERAPY
     Dosage: 50 TABLETS PER DAY, GRADUALLY INCREASED UP TO 06 TABLETS
     Dates: start: 20191015
  3. SANVAL [Concomitant]
     Active Substance: ZOLPIDEM TARTRATE
     Indication: PRODUCT USED FOR UNKNOWN INDICATION
     Dosage: 05 MG PER DAY BEFORE GOING TO SLEEP
  4. LYSODREN [Suspect]
     Active Substance: MITOTANE
     Indication: ADJUVANT THERAPY
     Dosage: 06 TABLETS PER DAY
     Dates: start: 201911, end: 201912
  5. CONTROLOC [Concomitant]
     Active Substance: PANTOPRAZOLE SODIUM
     Indication: PRODUCT USED FOR UNKNOWN INDICATION
     Dates: start: 202002
  6. LORAZEPAM. [Concomitant]
     Active Substance: LORAZEPAM
     Indication: PRODUCT USED FOR UNKNOWN INDICATION
     Dosage: 01 MG PER DAY BEFORE GOING TO SLEEP
  7. OMEPROL [Concomitant]
     Active Substance: OMEPRAZOLE
     Indication: ABDOMINAL PAIN UPPER
  8. LYSODREN [Suspect]
     Active Substance: MITOTANE
     Indication: ADJUVANT THERAPY
     Dosage: 03 TO 04 TABLETS PER DAY
     Dates: start: 201912
  9. LYSODREN [Suspect]
     Active Substance: MITOTANE
     Indication: ADJUVANT THERAPY
     Dosage: 05 TABLETS PER DAY
     Dates: start: 202002, end: 20200207
  10. CONTROLOC [Concomitant]
     Active Substance: PANTOPRAZOLE SODIUM
     Indication: PRODUCT USED FOR UNKNOWN INDICATION
     Dates: start: 202002
  11. EUTIROX [Concomitant]
     Active Substance: LEVOTHYROXINE SODIUM
     Indication: PRODUCT USED FOR UNKNOWN INDICATION
  12. SANVAL [Concomitant]
     Active Substance: ZOLPIDEM TARTRATE
     Indication: PRODUCT USED FOR UNKNOWN INDICATION
     Dates: start: 202002
  13. EDP [Concomitant]
     Active Substance: UNSPECIFIED INGREDIENT
     Indication: ADJUVANT THERAPY
     Dosage: 03 EDP CYCLES FROM JUN TO SEP 2019
     Dates: start: 201906, end: 201909
  14. LYSODREN [Suspect]
     Active Substance: MITOTANE
     Indication: ADJUVANT THERAPY
     Dosage: 07 TABLETS PER DAY
     Dates: start: 201912, end: 201912
  15. LYSODREN [Suspect]
     Active Substance: MITOTANE
     Indication: ADJUVANT THERAPY
     Dosage: 06 TABLETS PER DAY (2-2-2)
     Dates: start: 20191214, end: 2019
  16. HYDROCORTISONE. [Concomitant]
     Active Substance: HYDROCORTISONE
     Indication: PRODUCT USED FOR UNKNOWN INDICATION
     Dosage: DOSE REDUCED TO 50 MG RECENTLY
  17. LYSODREN [Suspect]
     Active Substance: MITOTANE
     Indication: ADJUVANT THERAPY
     Dosage: 09 TABLETS PER DAY
     Dates: start: 20191009, end: 20191010
  18. HYDROCORTISONE. [Concomitant]
     Active Substance: HYDROCORTISONE
     Indication: PRODUCT USED FOR UNKNOWN INDICATION
     Dosage: PREVIOUSLY TREATED WITH 90 MG
  19. VITAMIN C [Concomitant]
     Active Substance: ASCORBIC ACID
     Indication: PRODUCT USED FOR UNKNOWN INDICATION
     Dosage: UNSPECIFIED DOSAGE REGIMEN (REPORTED AS 1000MG)
  20. CONTROLOC [Concomitant]
     Active Substance: PANTOPRAZOLE SODIUM
     Indication: PRODUCT USED FOR UNKNOWN INDICATION
     Dosage: 60 MG PER DAY (40 MG IN THE MORNING, 20 MG IN THE EVENING)
     Dates: end: 202001
  21. HYDROCORTISONE. [Concomitant]
     Active Substance: HYDROCORTISONE
     Indication: PRODUCT USED FOR UNKNOWN INDICATION
     Dosage: 80 MG PER DAY (40 MG IN THE MORNING, 20 MG AT NOON AND 20 MG IN THE EVENING)
  22. SANVAL [Concomitant]
     Active Substance: ZOLPIDEM TARTRATE
     Indication: PRODUCT USED FOR UNKNOWN INDICATION
     Dates: start: 202002
  23. RANITIDINE. [Concomitant]
     Active Substance: RANITIDINE
     Indication: ABDOMINAL PAIN UPPER
  24. NEXIUM [Concomitant]
     Active Substance: ESOMEPRAZOLE MAGNESIUM
     Indication: ABDOMINAL PAIN UPPER
     Dosage: 40 MG TO 60 MG PER DAY
     Dates: start: 202002

REACTIONS (14)
  - Abdominal pain upper [Not Recovered/Not Resolved]
  - Headache [Not Recovered/Not Resolved]
  - Haemangioma of liver [Not Recovered/Not Resolved]
  - Off label use [Not Recovered/Not Resolved]
  - Nausea [Recovered/Resolved]
  - Insomnia [Not Recovered/Not Resolved]
  - Uterine leiomyoma [Not Recovered/Not Resolved]
  - Hallucination [Recovered/Resolved]
  - Disorientation [Not Recovered/Not Resolved]
  - Constipation [Not Recovered/Not Resolved]
  - Depression [Not Recovered/Not Resolved]
  - Gait disturbance [Not Recovered/Not Resolved]
  - Visual impairment [Not Recovered/Not Resolved]
  - Asthenia [Not Recovered/Not Resolved]

NARRATIVE: CASE EVENT DATE: 2019
